FAERS Safety Report 17130682 (Version 1)
Quarter: 2019Q4

REPORT INFORMATION
  Report Type: Spontaneous
  Country: None (occurrence: US)
  Receive Date: 20191209
  Receipt Date: 20191209
  Transmission Date: 20200122
  Serious: Yes (Hospitalization)
  Sender: FDA-Public Use
  Company Number: US-STASON PHARMACEUTICALS, INC.-2077636

PATIENT
  Age: 17 Year
  Sex: Male
  Weight: 44.2 kg

DRUGS (1)
  1. MERCAPTOPURINE. [Suspect]
     Active Substance: MERCAPTOPURINE

REACTIONS (5)
  - Sepsis [Recovering/Resolving]
  - Adenovirus infection [Recovering/Resolving]
  - Pruritus [Recovered/Resolved]
  - Pyrexia [Recovering/Resolving]
  - Tachycardia [Recovering/Resolving]
